FAERS Safety Report 17780259 (Version 2)
Quarter: 2020Q2

REPORT INFORMATION
  Report Type: Report from Study
  Country: US (occurrence: US)
  Receive Date: 20200514
  Receipt Date: 20200519
  Transmission Date: 20200714
  Serious: Yes (Hospitalization)
  Sender: FDA-Public Use
  Company Number: US-ROCHE-2596590

PATIENT
  Age: 64 Year
  Sex: Female
  Weight: 66.2 kg

DRUGS (3)
  1. CISPLATIN. [Suspect]
     Active Substance: CISPLATIN
     Indication: SMALL CELL LUNG CANCER
     Dosage: ON 23/MAR/2020, MOST RECENT DOSE
     Route: 065
     Dates: start: 20200203
  2. ETOPOSIDE. [Suspect]
     Active Substance: ETOPOSIDE
     Indication: SMALL CELL LUNG CANCER
     Dosage: ON 25/MAR/2020, MOST RECENT DOSE
     Route: 065
     Dates: start: 20200203
  3. ATEZOLIZUMAB. [Suspect]
     Active Substance: ATEZOLIZUMAB
     Indication: SMALL CELL LUNG CANCER
     Dosage: ON 23/MAR/2020, MOST RECENT DOSE. ON 13/APR/2020, TREATMENT ON HOLD.
     Route: 042
     Dates: start: 20200203

REACTIONS (12)
  - Anaemia [Recovered/Resolved]
  - Decreased appetite [Recovering/Resolving]
  - Radiation skin injury [Recovered/Resolved]
  - Anaemia [Recovered/Resolved]
  - White blood cell count decreased [Recovered/Resolved]
  - Hypokalaemia [Recovering/Resolving]
  - Nausea [Unknown]
  - Stomatitis [Recovering/Resolving]
  - Weight decreased [Recovering/Resolving]
  - Vomiting [Recovered/Resolved]
  - Pneumonia [Unknown]
  - Platelet count decreased [Recovered/Resolved]

NARRATIVE: CASE EVENT DATE: 20200330
